FAERS Safety Report 10255689 (Version 2)
Quarter: 2014Q3

REPORT INFORMATION
  Report Type: Report from Study
  Country: US (occurrence: US)
  Receive Date: 20140624
  Receipt Date: 20140718
  Transmission Date: 20150326
  Serious: Yes (Life-Threatening)
  Sender: FDA-Public Use
  Company Number: PHEH2014US012558

PATIENT
  Sex: Female

DRUGS (1)
  1. DIOVAN [Suspect]
     Active Substance: VALSARTAN
     Indication: BLOOD PRESSURE INCREASED
     Dosage: 160 MG, UNK
     Route: 048

REACTIONS (5)
  - Hyperthyroidism [Unknown]
  - Suicide attempt [Unknown]
  - Drug ineffective [Unknown]
  - Blood cholesterol increased [Unknown]
  - Hypertension [Unknown]
